FAERS Safety Report 8345549-4 (Version None)
Quarter: 2012Q2

REPORT INFORMATION
  Report Type: 
  Country: None (occurrence: None)
  Receive Date: 20120508
  Receipt Date: 20120502
  Transmission Date: 20120825
  Serious: Yes (Other)
  Sender: FDA-Public Use
  Company Number: US-BAYER-2012-043750

PATIENT

DRUGS (3)
  1. NAPROXEN SODIUM [Suspect]
  2. ACETAMINOPHEN [Suspect]
  3. IBUPROFEN TABLETS [Suspect]

REACTIONS (1)
  - HEPATIC HAEMORRHAGE [None]
